FAERS Safety Report 6274375-5 (Version None)
Quarter: 2009Q3

REPORT INFORMATION
  Report Type: 
  Country: None (occurrence: None)
  Receive Date: 20090716
  Receipt Date: 20090707
  Transmission Date: 20100115
  Serious: Yes (Other)
  Sender: FDA-Public Use
  Company Number: CHPA2009US15047

PATIENT
  Age: 60 Year
  Sex: Female
  Weight: 72.6 kg

DRUGS (2)
  1. EXCEDRIN (MIGRAINE) [Suspect]
     Indication: INSOMNIA
     Dosage: 2 DF, QD, ORAL; 4 DF, QD, ORAL
     Route: 048
     Dates: start: 20090707, end: 20090707
  2. EXCEDRIN (MIGRAINE) [Suspect]
     Indication: INSOMNIA
     Dosage: 2 DF, QD, ORAL; 4 DF, QD, ORAL
     Route: 048
     Dates: start: 19990101

REACTIONS (4)
  - HYSTERECTOMY [None]
  - INCORRECT DOSE ADMINISTERED [None]
  - INTENTIONAL DRUG MISUSE [None]
  - SINUS DISORDER [None]
